FAERS Safety Report 22288264 (Version 1)
Quarter: 2023Q2

REPORT INFORMATION
  Report Type: Other
  Country: IN (occurrence: None)
  Receive Date: 20230505
  Receipt Date: 20230505
  Transmission Date: 20230722
  Serious: Yes (Death)
  Sender: FDA-Public Use
  Company Number: IN-ROCHE-3341914

PATIENT
  Age: 70 Year
  Sex: Male

DRUGS (1)
  1. TECENTRIQ [Suspect]
     Active Substance: ATEZOLIZUMAB
     Indication: Lung adenocarcinoma
     Route: 042
     Dates: start: 20230314

REACTIONS (3)
  - General physical health deterioration [Unknown]
  - Cerebral cyst [Unknown]
  - Death [Fatal]

NARRATIVE: CASE EVENT DATE: 20230418
